FAERS Safety Report 4922607-5 (Version None)
Quarter: 2006Q1

REPORT INFORMATION
  Report Type: 
  Country: None (occurrence: None)
  Receive Date: 20060223
  Receipt Date: 20060223
  Transmission Date: 20060701
  Serious: Yes (Other)
  Sender: FDA-Public Use
  Company Number: None

PATIENT

DRUGS (1)
  1. SULTAN TOPEX TOPICAL ANESTHETIC (BENZOCAINE 20 %) [Suspect]
     Dosage: SEVERAL SPRAYS IN BACK OF THROAT

REACTIONS (2)
  - DEVICE FAILURE [None]
  - PHARMACEUTICAL PRODUCT COMPLAINT [None]
